FAERS Safety Report 4502587-7 (Version None)
Quarter: 2004Q3

REPORT INFORMATION
  Report Type: 
  Country: None (occurrence: None)
  Receive Date: 20040928
  Receipt Date: 20040721
  Transmission Date: 20050211
  Serious: No
  Sender: FDA-Public Use
  Company Number: 04P-163-0267648-00

PATIENT
  Age: 77 Year
  Sex: Female
  Weight: 62.5964 kg

DRUGS (4)
  1. HUMIRA [Suspect]
     Indication: RHEUMATOID ARTHRITIS
     Dosage: 40 MG, 1 IN 14 D, SUBCUTANEOUS
     Route: 058
     Dates: start: 20031001, end: 20031201
  2. ALENDRONATE SODIUM [Concomitant]
  3. LANSOPRAZOLE [Concomitant]
  4. DIOVAN [Concomitant]

REACTIONS (1)
  - DRUG EFFECT DECREASED [None]
